FAERS Safety Report 25574406 (Version 5)
Quarter: 2025Q3

REPORT INFORMATION
  Report Type: Report from Study
  Country: EU (occurrence: EU)
  Receive Date: 20250717
  Receipt Date: 20250811
  Transmission Date: 20251021
  Serious: Yes (Hospitalization, Other)
  Sender: ABBVIE
  Company Number: EU-ABBVIE-6374179

PATIENT
  Age: 77 Year
  Sex: Male

DRUGS (5)
  1. CARBIDOPA\LEVODOPA [Suspect]
     Active Substance: CARBIDOPA\LEVODOPA
     Indication: Parkinson^s disease
     Route: 050
     Dates: start: 20220802
  2. CARBIDOPA\LEVODOPA [Suspect]
     Active Substance: CARBIDOPA\LEVODOPA
  3. BENSERAZIDE HYDROCHLORIDE\LEVODOPA [Suspect]
     Active Substance: BENSERAZIDE HYDROCHLORIDE\LEVODOPA
     Indication: Parkinson^s disease
     Route: 065
  4. BENSERAZIDE HYDROCHLORIDE\LEVODOPA [Suspect]
     Active Substance: BENSERAZIDE HYDROCHLORIDE\LEVODOPA
     Indication: Parkinson^s disease
     Route: 065
  5. BENSERAZIDE HYDROCHLORIDE\LEVODOPA [Suspect]
     Active Substance: BENSERAZIDE HYDROCHLORIDE\LEVODOPA
     Indication: Parkinson^s disease
     Route: 065

REACTIONS (26)
  - Depressed level of consciousness [Not Recovered/Not Resolved]
  - Hypokinesia [Unknown]
  - Gastrointestinal injury [Unknown]
  - Device dislocation [Not Recovered/Not Resolved]
  - Incorrect route of product administration [Unknown]
  - Hospitalisation [Unknown]
  - Device issue [Unknown]
  - Device kink [Unknown]
  - Device connection issue [Unknown]
  - Enteral nutrition [Not Recovered/Not Resolved]
  - On and off phenomenon [Unknown]
  - Chronic gastritis [Unknown]
  - Polyneuropathy [Unknown]
  - Hyperkinesia [Unknown]
  - C-reactive protein increased [Recovering/Resolving]
  - Urine abnormality [Recovering/Resolving]
  - Urinary tract infection [Unknown]
  - Restlessness [Unknown]
  - Device dislocation [Recovered/Resolved]
  - Device dislocation [Recovered/Resolved]
  - Device dislocation [Recovered/Resolved]
  - Device dislocation [Recovered/Resolved]
  - Hypertension [Unknown]
  - Renal failure [Unknown]
  - Cardiac failure [Unknown]
  - Malignant melanoma [Unknown]

NARRATIVE: CASE EVENT DATE: 20220901
